FAERS Safety Report 10072967 (Version 1)
Quarter: 2014Q2

REPORT INFORMATION
  Report Type: Spontaneous
  Country: MA (occurrence: MA)
  Receive Date: 20140411
  Receipt Date: 20140411
  Transmission Date: 20141212
  Serious: Yes (Other)
  Sender: FDA-Public Use
  Company Number: MA-WATSON-2014-06610

PATIENT
  Age: 53 Year
  Sex: Female

DRUGS (1)
  1. VALPROIC ACID (UNKNOWN) [Suspect]
     Indication: POST-TRAUMATIC EPILEPSY
     Dosage: UNK
     Route: 065

REACTIONS (1)
  - Systemic lupus erythematosus [Recovered/Resolved]
